FAERS Safety Report 25671056 (Version 1)
Quarter: 2025Q3

REPORT INFORMATION
  Report Type: Spontaneous
  Country: US (occurrence: US)
  Receive Date: 20250812
  Receipt Date: 20250812
  Transmission Date: 20251020
  Serious: Yes (Life-Threatening, Other)
  Sender: EDGEWELL PERSONAL CARE BRANDS
  Company Number: US-Edgewell Personal Care, LLC-2178109

PATIENT
  Age: 83 Year
  Sex: Male

DRUGS (1)
  1. HAWAIIAN TROPIC (AVOBENZONE\HOMOSALATE\OCTISALATE\OCTOCRYLENE\OXYBENZO [Suspect]
     Active Substance: AVOBENZONE\HOMOSALATE\OCTISALATE\OCTOCRYLENE\OXYBENZONE
     Indication: Prophylaxis against solar radiation
     Dates: start: 20250301, end: 20250322

REACTIONS (8)
  - Tachycardia [Unknown]
  - Dizziness [Unknown]
  - Anxiety [Unknown]
  - Blood pressure increased [Unknown]
  - Monoplegia [Recovered/Resolved]
  - Dyspnoea [Unknown]
  - Dyspnoea [Unknown]
  - Hyperventilation [Unknown]
